FAERS Safety Report 10052194 (Version 1)
Quarter: 2014Q2

REPORT INFORMATION
  Report Type: Spontaneous
  Country: US (occurrence: None)
  Receive Date: 20140401
  Receipt Date: 20140401
  Transmission Date: 20141212
  Serious: Yes (Hospitalization)
  Sender: FDA-Public Use
  Company Number: None

PATIENT
  Age: 66 Year
  Sex: Female
  Weight: 75 kg

DRUGS (1)
  1. ELTROMBOPAG [Suspect]
     Indication: APLASTIC ANAEMIA
     Route: 048
     Dates: start: 20140324, end: 20140331

REACTIONS (3)
  - Kidney infection [None]
  - Hydronephrosis [None]
  - Haemorrhage urinary tract [None]
